FAERS Safety Report 19665681 (Version 1)
Quarter: 2021Q3

REPORT INFORMATION
  Report Type: Spontaneous
  Country: US (occurrence: US)
  Receive Date: 20210805
  Receipt Date: 20210805
  Transmission Date: 20211014
  Serious: No
  Sender: FDA-Public Use
  Company Number: None

PATIENT
  Sex: Female

DRUGS (5)
  1. HYDROCHLOROTHIAZIDE. [Concomitant]
     Active Substance: HYDROCHLOROTHIAZIDE
  2. CARVEDILOL. [Concomitant]
     Active Substance: CARVEDILOL
  3. FENTANYL. [Concomitant]
     Active Substance: FENTANYL
  4. LOSARTAN. [Concomitant]
     Active Substance: LOSARTAN
  5. IBRANCE [Suspect]
     Active Substance: PALBOCICLIB
     Indication: BREAST CANCER FEMALE
     Dosage: ?          OTHER FREQUENCY:QD X21OF 28 DAYS;?
     Route: 048

REACTIONS (1)
  - Disease progression [None]
